FAERS Safety Report 8458115-7 (Version None)
Quarter: 2012Q2

REPORT INFORMATION
  Report Type: 
  Country: None (occurrence: None)
  Receive Date: 20120622
  Receipt Date: 20120615
  Transmission Date: 20120825
  Serious: Yes (Life-Threatening)
  Sender: FDA-Public Use
  Company Number: JP-BAYER-2012-039508

PATIENT
  Age: 74 Year
  Sex: Male
  Weight: 59 kg

DRUGS (4)
  1. NEXAVAR [Suspect]
     Indication: RENAL CELL CARCINOMA
     Dosage: 400 MG DAILY DOSE
     Route: 048
     Dates: start: 20120322, end: 20120407
  2. TAMSULOSIN HCL [Suspect]
     Indication: BENIGN PROSTATIC HYPERPLASIA
     Dosage: DAILY DOSE 0.2 MG
     Route: 048
  3. TORISEL [Concomitant]
     Dosage: DAILY DOSE 25 MG
     Route: 042
     Dates: start: 20111125, end: 20120203
  4. LANSOPRAZOLE [Suspect]
     Indication: GASTRIC ULCER
     Dosage: DAILY DOSE 15 MG
     Route: 048

REACTIONS (1)
  - INTERSTITIAL LUNG DISEASE [None]
